FAERS Safety Report 15648755 (Version 1)
Quarter: 2018Q4

REPORT INFORMATION
  Report Type: Spontaneous
  Country: US (occurrence: US)
  Receive Date: 20181122
  Receipt Date: 20181122
  Transmission Date: 20190205
  Serious: No
  Sender: FDA-Public Use
  Company Number: US-ASTRAZENECA-2018SF41146

PATIENT
  Age: 23257 Day
  Sex: Female
  Weight: 79.4 kg

DRUGS (1)
  1. BYDUREON BCISE [Suspect]
     Active Substance: EXENATIDE
     Route: 058
     Dates: start: 20181016

REACTIONS (4)
  - Underdose [Unknown]
  - Blood glucose increased [Unknown]
  - Injection site extravasation [Unknown]
  - Malaise [Unknown]

NARRATIVE: CASE EVENT DATE: 20181023
